FAERS Safety Report 16168062 (Version 2)
Quarter: 2019Q2

REPORT INFORMATION
  Report Type: Spontaneous
  Country: US (occurrence: US)
  Receive Date: 20190408
  Receipt Date: 20190528
  Transmission Date: 20190711
  Serious: No
  Sender: FDA-Public Use
  Company Number: US-PFIZER INC-2019142349

PATIENT
  Age: 65 Year
  Sex: Male
  Weight: 94.8 kg

DRUGS (3)
  1. VIAGRA [Suspect]
     Active Substance: SILDENAFIL CITRATE
     Indication: ERECTILE DYSFUNCTION
     Dosage: 100 MG, UNK (WHEN GETTING READY FOR SEX )
     Route: 048
  2. VIAGRA [Suspect]
     Active Substance: SILDENAFIL CITRATE
     Indication: PROSTATIC OPERATION
     Dosage: UNK UNK, AS NEEDED (100 MG TABLETS, WOULD TAKE 2-5 TABLETS AS NEEDED)
     Dates: start: 2018
  3. VIAGRA [Suspect]
     Active Substance: SILDENAFIL CITRATE
     Indication: SEXUAL DYSFUNCTION

REACTIONS (2)
  - Overdose [Unknown]
  - Drug ineffective [Unknown]
